FAERS Safety Report 20045726 (Version 1)
Quarter: 2021Q4

REPORT INFORMATION
  Report Type: Spontaneous
  Country: US (occurrence: None)
  Receive Date: 20211108
  Receipt Date: 20211108
  Transmission Date: 20220303
  Serious: No
  Sender: FDA-Public Use
  Company Number: None

PATIENT
  Age: 81 Year
  Sex: Female
  Weight: 83.25 kg

DRUGS (18)
  1. CLOPIDOGREL BISULFATE [Suspect]
     Active Substance: CLOPIDOGREL BISULFATE
     Indication: Anticoagulant therapy
     Dosage: FREQUENCY : DAILY;?
     Route: 048
     Dates: start: 20211105, end: 20211107
  2. NAPROXEN [Suspect]
     Active Substance: NAPROXEN
  3. ALPRAZOLAM [Suspect]
     Active Substance: ALPRAZOLAM
  4. NORTRIPTYLINE [Suspect]
     Active Substance: NORTRIPTYLINE
  5. FLUNISOLIDE [Suspect]
     Active Substance: FLUNISOLIDE
  6. OMEGA GENETICS EPA [Concomitant]
  7. DHA FISH OIL [Concomitant]
  8. CHONDRO [Concomitant]
  9. RELIEF PLUS [Concomitant]
  10. VITAMIN C [Concomitant]
     Active Substance: ASCORBIC ACID
  11. CALCIUM [Concomitant]
     Active Substance: CALCIUM
  12. GLYCOGENESIS COMPLETE B COMPLEX [Concomitant]
  13. VITAMIN D3 [Concomitant]
     Active Substance: CHOLECALCIFEROL
  14. VITAMIN E [Concomitant]
     Active Substance: .ALPHA.-TOCOPHEROL
  15. LYSINE [Concomitant]
     Active Substance: LYSINE
  16. BIOTIN [Concomitant]
     Active Substance: BIOTIN
  17. CEYLON CINNAMON [Concomitant]
  18. CURALIN [Concomitant]

REACTIONS (1)
  - Palpitations [None]

NARRATIVE: CASE EVENT DATE: 20211105
